FAERS Safety Report 4869765-9 (Version None)
Quarter: 2005Q4

REPORT INFORMATION
  Report Type: 
  Country: None (occurrence: None)
  Receive Date: 20051227
  Receipt Date: 20051215
  Transmission Date: 20060501
  Serious: Yes (Other)
  Sender: FDA-Public Use
  Company Number: 236317K05USA

PATIENT
  Age: 49 Year
  Sex: Male

DRUGS (2)
  1. REBIF [Suspect]
     Indication: MULTIPLE SCLEROSIS
     Dosage: 22 MCG, 3 IN 1 WEEKS, SUBCUTANEOUS
     Route: 058
     Dates: start: 20030101
  2. INSULIN [Concomitant]

REACTIONS (3)
  - INJECTION SITE IRRITATION [None]
  - NIGHT BLINDNESS [None]
  - VISUAL ACUITY REDUCED [None]
